FAERS Safety Report 26144827 (Version 1)
Quarter: 2025Q4

REPORT INFORMATION
  Report Type: Spontaneous
  Country: US (occurrence: None)
  Receive Date: 20251211
  Receipt Date: 20251211
  Transmission Date: 20260118
  Serious: Yes (Death, Hospitalization, Other)
  Sender: APOTEX
  Company Number: US-APOTEX-2025AP033928

PATIENT
  Age: 50 Year
  Sex: Male

DRUGS (6)
  1. TRAZODONE [Suspect]
     Active Substance: TRAZODONE HYDROCHLORIDE
     Indication: Schizophrenia
     Dosage: UNK
     Route: 065
  2. TRAZODONE [Suspect]
     Active Substance: TRAZODONE HYDROCHLORIDE
     Indication: Bipolar disorder
  3. QUETIAPINE [Suspect]
     Active Substance: QUETIAPINE
     Indication: Schizophrenia
     Dosage: UNK
     Route: 065
  4. QUETIAPINE [Suspect]
     Active Substance: QUETIAPINE
     Indication: Bipolar disorder
  5. CLONAZEPAM [Concomitant]
     Active Substance: CLONAZEPAM
     Indication: Schizophrenia
     Dosage: UNK
     Route: 065
  6. CLONAZEPAM [Concomitant]
     Active Substance: CLONAZEPAM
     Indication: Bipolar disorder

REACTIONS (16)
  - Cardiac arrest [Fatal]
  - Unresponsive to stimuli [Fatal]
  - Ventricular tachycardia [Fatal]
  - Atrial fibrillation [Fatal]
  - Hypokalaemia [Fatal]
  - Acute coronary syndrome [Fatal]
  - Electrocardiogram QRS complex prolonged [Fatal]
  - Electrocardiogram QT prolonged [Fatal]
  - Brain hypoxia [Fatal]
  - Cytotoxic oedema [Fatal]
  - Overdose [Fatal]
  - Acidosis [Fatal]
  - Dyskinesia [Fatal]
  - Blood bicarbonate decreased [Fatal]
  - Blood creatinine increased [Fatal]
  - Bradycardia [Fatal]
